FAERS Safety Report 9013714 (Version 2)
Quarter: 2013Q1

REPORT INFORMATION
  Report Type: Spontaneous
  Country: FR (occurrence: FR)
  Receive Date: 20130115
  Receipt Date: 20130204
  Transmission Date: 20140127
  Serious: Yes (Hospitalization, Other)
  Sender: FDA-Public Use
  Company Number: PHHY2012FR115074

PATIENT
  Sex: Male

DRUGS (5)
  1. GLIVEC [Suspect]
     Indication: CHRONIC MYELOID LEUKAEMIA
     Dosage: 400 MG DAILY
     Route: 048
     Dates: start: 200307, end: 20121121
  2. PREVISCAN [Suspect]
     Dosage: UNK UKN, UNK
     Route: 048
     Dates: start: 2007, end: 20121121
  3. EXFORGE [Concomitant]
     Dosage: UNK UKN, UNK
     Route: 048
  4. DETENSIEL [Concomitant]
     Dosage: 10 MG, DAILY
  5. INIPOMP [Concomitant]
     Dosage: 40 MG, DAILY

REACTIONS (2)
  - Intestinal haemorrhage [Recovering/Resolving]
  - Gastrointestinal angiodysplasia [Not Recovered/Not Resolved]
